FAERS Safety Report 8244464-4 (Version None)
Quarter: 2012Q1

REPORT INFORMATION
  Report Type: 
  Country: None (occurrence: None)
  Receive Date: 20120329
  Receipt Date: 20120321
  Transmission Date: 20120608
  Serious: Yes (Hospitalization, Other)
  Sender: FDA-Public Use
  Company Number: US-BAYER-2011-122092

PATIENT
  Age: 28 Year
  Sex: Female

DRUGS (8)
  1. METRONIDAZOLE [Concomitant]
     Dosage: 500 MG, UNK
  2. YAZ [Suspect]
     Indication: ACNE
  3. YAZ [Suspect]
     Indication: CONTRACEPTION
     Dosage: UNK
     Dates: start: 20090801, end: 20091201
  4. PROMETHAZINE [Concomitant]
  5. ADVAIR DISKUS 100/50 [Concomitant]
  6. TAMIFLU [Concomitant]
     Dosage: 75 MG, UNK
  7. AMITRIPTYLINE HCL [Concomitant]
     Dosage: 25 MG, UNK
  8. PHENTERMINE [Concomitant]
     Dosage: 37.5 MG, UNK

REACTIONS (8)
  - PROCEDURAL PAIN [None]
  - GALLBLADDER DISORDER [None]
  - PAIN [None]
  - EMOTIONAL DISTRESS [None]
  - GASTROINTESTINAL DISORDER [None]
  - CHOLELITHIASIS [None]
  - ANXIETY [None]
  - ABDOMINAL PAIN [None]
